FAERS Safety Report 17912101 (Version 4)
Quarter: 2020Q3

REPORT INFORMATION
  Report Type: Spontaneous
  Country: GB (occurrence: GB)
  Receive Date: 20200618
  Receipt Date: 20200918
  Transmission Date: 20201103
  Serious: Yes (Death, Other)
  Sender: FDA-Public Use
  Company Number: GB-REGENERON PHARMACEUTICALS, INC.-2020-44669

PATIENT

DRUGS (8)
  1. EYLEA [Suspect]
     Active Substance: AFLIBERCEPT
     Indication: MACULAR DEGENERATION
     Dosage: 3 INJECTIONS PRIOR TO EVENT ^TIREDNESS^, 7 INJECTIONS IN TOTAL
     Route: 031
     Dates: start: 20181018, end: 20190705
  2. EYLEA [Suspect]
     Active Substance: AFLIBERCEPT
     Dosage: 1 DF, ONCE ? THIRD INJECTION
     Route: 031
     Dates: start: 20181218, end: 20181218
  3. EYLEA [Suspect]
     Active Substance: AFLIBERCEPT
     Dosage: 1 DF, ONCE ? SIXTH INJECTION
     Route: 031
     Dates: start: 20190524, end: 20190524
  4. EYLEA [Suspect]
     Active Substance: AFLIBERCEPT
     Dosage: 1 DF, ONCE ? SECOND INJECTION
     Route: 031
     Dates: start: 20181120, end: 20181120
  5. EYLEA [Suspect]
     Active Substance: AFLIBERCEPT
     Dosage: 1 DF, ONCE ? FOURTH INJECTION
     Route: 031
     Dates: start: 20190226, end: 20190226
  6. EYLEA [Suspect]
     Active Substance: AFLIBERCEPT
     Dosage: 1 DF, ONCE ? FIFTH INJECTION
     Route: 031
     Dates: start: 20190411, end: 20190411
  7. EYLEA [Suspect]
     Active Substance: AFLIBERCEPT
     Dosage: 1 DF, ONCE ? SEVENTH INJECTION
     Route: 031
     Dates: start: 20190705, end: 20190705
  8. EYLEA [Suspect]
     Active Substance: AFLIBERCEPT
     Dosage: 1 DF, ONCE ? FIRST INJECTION
     Route: 031
     Dates: start: 20181018, end: 20181018

REACTIONS (10)
  - Panic attack [Unknown]
  - Anxiety [Unknown]
  - Cough [Unknown]
  - Stress [Unknown]
  - Dyspnoea at rest [Unknown]
  - Fatigue [Unknown]
  - Pulmonary embolism [Fatal]
  - Influenza like illness [Unknown]
  - Cardiac arrest [Fatal]
  - Dyspnoea [Unknown]

NARRATIVE: CASE EVENT DATE: 2019
